FAERS Safety Report 4556070-3 (Version None)
Quarter: 2005Q1

REPORT INFORMATION
  Report Type: 
  Country: None (occurrence: None)
  Receive Date: 20050119
  Receipt Date: 20050111
  Transmission Date: 20050727
  Serious: Yes (Hospitalization)
  Sender: FDA-Public Use
  Company Number: PHNU2005DE00495

PATIENT
  Age: 11 Year
  Sex: Male
  Weight: 55 kg

DRUGS (7)
  1. VOMEX A ^YAMANOUCHI^ [Suspect]
     Indication: NAUSEA
     Dosage: 100 MG/DAY
     Route: 048
     Dates: start: 20041213, end: 20041214
  2. FLUTICASONE PROPIONATE [Concomitant]
     Dosage: 100 UG, BID
  3. ALBUTEROL [Concomitant]
     Dosage: 2 DF, TID
  4. EQUASYM [Concomitant]
     Indication: ATTENTION DEFICIT/HYPERACTIVITY DISORDER
     Dosage: 30 MG/DAY
     Route: 048
  5. TOFRANIL [Suspect]
     Indication: ATTENTION DEFICIT/HYPERACTIVITY DISORDER
     Dosage: 75 MG/DAY
     Route: 048
     Dates: end: 20041201
  6. TOFRANIL [Suspect]
     Dosage: 50 MG/DAY
     Route: 048
     Dates: start: 20041201, end: 20041201
  7. TOFRANIL [Suspect]
     Dosage: 50 MG/DAY
     Route: 048
     Dates: start: 20041201

REACTIONS (8)
  - CONDITION AGGRAVATED [None]
  - DIPLOPIA [None]
  - DRUG INTERACTION [None]
  - GASTROENTERITIS [None]
  - HEADACHE [None]
  - NAUSEA [None]
  - VISION BLURRED [None]
  - VOMITING [None]
